FAERS Safety Report 18208335 (Version 1)
Quarter: 2020Q3

REPORT INFORMATION
  Report Type: Spontaneous
  Country: FR (occurrence: FR)
  Receive Date: 20200828
  Receipt Date: 20200828
  Transmission Date: 20201103
  Serious: Yes (Hospitalization)
  Sender: FDA-Public Use
  Company Number: FR-MYLANLABS-2020M1073503

PATIENT
  Age: 66 Year
  Sex: Male
  Weight: 118 kg

DRUGS (19)
  1. PYLERA [Suspect]
     Active Substance: BISMUTH SUBCITRATE POTASSIUM\METRONIDAZOLE\TETRACYCLINE HYDROCHLORIDE
     Indication: GASTRIC ULCER HELICOBACTER
     Dosage: 12 DOSAGE FORM, QD
     Route: 048
     Dates: start: 20200625, end: 20200703
  2. CETIRIZINE DIHYDROCHLORIDE [Concomitant]
     Active Substance: CETIRIZINE HYDROCHLORIDE
  3. DOLIPRANE [Concomitant]
     Active Substance: ACETAMINOPHEN
  4. METFORMINE                         /00082701/ [Concomitant]
     Active Substance: METFORMIN HYDROCHLORIDE
  5. LIRAGLUTIDE [Concomitant]
     Active Substance: LIRAGLUTIDE
     Dosage: UNK
  6. FLUOXETINE [Concomitant]
     Active Substance: FLUOXETINE HYDROCHLORIDE
  7. LEVOTHYROXINE SODIQUE [Concomitant]
     Active Substance: LEVOTHYROXINE SODIUM
  8. OMIX [Concomitant]
     Active Substance: TAMSULOSIN HYDROCHLORIDE
     Dosage: UNK
  9. OMEPRAZOLE. [Suspect]
     Active Substance: OMEPRAZOLE
     Indication: GASTRIC ULCER HELICOBACTER
     Dosage: 20 MILLIGRAM, QD
     Route: 048
     Dates: start: 20200625, end: 20200703
  10. ZYMAD [Concomitant]
     Active Substance: CHOLECALCIFEROL
  11. CALCIDOSE                          /00944201/ [Concomitant]
     Active Substance: CALCIUM CARBONATE\CHOLECALCIFEROL
  12. ZOPICLONE [Concomitant]
     Active Substance: ZOPICLONE
  13. ANORO ELLIPTA [Concomitant]
     Active Substance: UMECLIDINIUM BROMIDE\VILANTEROL TRIFENATATE
     Dosage: UNK
  14. COSENTYX [Concomitant]
     Active Substance: SECUKINUMAB
     Dosage: UNK
  15. PRIMPERAN [Concomitant]
     Active Substance: METOCLOPRAMIDE HYDROCHLORIDE
  16. CORTANCYL [Concomitant]
     Active Substance: PREDNISONE
     Dosage: UNK
  17. IRBESARTAN. [Concomitant]
     Active Substance: IRBESARTAN
  18. ELIQUIS [Concomitant]
     Active Substance: APIXABAN
  19. AMYCOR ONYCHOSET [Concomitant]

REACTIONS (8)
  - Myalgia [Recovered/Resolved]
  - Visual acuity reduced [Recovered/Resolved]
  - Muscular weakness [Recovered/Resolved]
  - Headache [Recovered/Resolved]
  - Somnolence [Recovered/Resolved]
  - Hallucination [Recovered/Resolved]
  - Urinary incontinence [Recovering/Resolving]
  - Dysuria [Recovering/Resolving]

NARRATIVE: CASE EVENT DATE: 202007
